FAERS Safety Report 8928910 (Version 2)
Quarter: 2012Q4

REPORT INFORMATION
  Report Type: Report from Study
  Country: JP (occurrence: JP)
  Receive Date: 20121128
  Receipt Date: 20121221
  Transmission Date: 20130627
  Serious: Yes (Life-Threatening, Other)
  Sender: FDA-Public Use
  Company Number: JP-GENZYME-THYM-1003500

PATIENT
  Age: 62 Year
  Sex: Male
  Weight: 60 kg

DRUGS (4)
  1. THYMOGLOBULIN [Suspect]
     Indication: PROPHYLAXIS AGAINST TRANSPLANT REJECTION
     Dosage: 1.5 mg/kg, qd
     Route: 042
     Dates: start: 20121030, end: 20121031
  2. THYMOGLOBULIN [Suspect]
     Dosage: 1.5 mg/kg, qd
     Route: 042
     Dates: start: 20121113
  3. WARFARIN POTASSIUM [Concomitant]
     Indication: CARDIAC DISORDER
     Dosage: UNK (discontinued for 2 weeks)
     Route: 065
     Dates: start: 2012, end: 2012
  4. WARFARIN POTASSIUM [Concomitant]
     Dosage: UNK
     Route: 065
     Dates: start: 20121113

REACTIONS (2)
  - Pulmonary oedema [Not Recovered/Not Resolved]
  - Kidney transplant rejection [Unknown]
